FAERS Safety Report 5041732-4 (Version None)
Quarter: 2006Q2

REPORT INFORMATION
  Report Type: 
  Country: None (occurrence: None)
  Receive Date: 20060630
  Receipt Date: 20060627
  Transmission Date: 20061013
  Serious: Yes (Other)
  Sender: FDA-Public Use
  Company Number: HQWYE137402JUN05

PATIENT
  Age: 78 Year
  Sex: Female
  Weight: 72.64 kg

DRUGS (2)
  1. AXID AR [Suspect]
     Indication: GASTROOESOPHAGEAL REFLUX DISEASE
     Dosage: 1 TABLET 1X PER 1 DAY, ORAL
     Route: 048
     Dates: start: 20050530, end: 20050530
  2. XANAX [Concomitant]

REACTIONS (6)
  - DIZZINESS [None]
  - DRUG INEFFECTIVE [None]
  - GINGIVAL SWELLING [None]
  - OEDEMA MOUTH [None]
  - SWELLING FACE [None]
  - THROAT TIGHTNESS [None]
